FAERS Safety Report 8511047-8 (Version None)
Quarter: 2012Q3

REPORT INFORMATION
  Report Type: 
  Country: None (occurrence: None)
  Receive Date: 20120716
  Receipt Date: 20120706
  Transmission Date: 20120928
  Serious: Yes (Other)
  Sender: FDA-Public Use
  Company Number: US-JNJFOC-20120704408

PATIENT
  Age: 63 Year
  Sex: Female
  Weight: 64.4 kg

DRUGS (29)
  1. IBUPROFEN [Suspect]
     Indication: JOINT SWELLING
     Route: 065
  2. ALEVE [Suspect]
     Indication: OEDEMA PERIPHERAL
     Route: 065
  3. DOXYCYCLINE [Concomitant]
     Indication: LYME DISEASE
     Route: 065
     Dates: start: 20120601
  4. CELEBREX [Suspect]
     Route: 065
     Dates: start: 20120201, end: 20120101
  5. CELEBREX [Suspect]
     Route: 065
     Dates: start: 20120201, end: 20120101
  6. AZITHROMYCIN [Suspect]
     Indication: PRODUCT USED FOR UNKNOWN INDICATION
     Route: 065
  7. SULFASALAZINE [Suspect]
     Indication: OEDEMA PERIPHERAL
     Route: 065
  8. IBUPROFEN [Suspect]
     Indication: OEDEMA PERIPHERAL
     Route: 065
  9. SULFASALAZINE [Suspect]
     Indication: ARTHRITIS
     Route: 065
  10. SULFASALAZINE [Suspect]
     Indication: JOINT SWELLING
     Route: 065
  11. MOBIC [Suspect]
     Indication: ARTHRITIS
     Route: 065
  12. ALEVE [Suspect]
     Indication: ARTHRITIS
     Route: 065
  13. MEPREDNISONE [Concomitant]
     Indication: JOINT SWELLING
     Route: 065
  14. PREDNISONE [Suspect]
     Indication: OEDEMA PERIPHERAL
     Route: 065
  15. PLAQUENIL [Suspect]
     Indication: ARTHRITIS
     Route: 065
  16. MOBIC [Suspect]
     Indication: JOINT SWELLING
     Route: 065
  17. IBUPROFEN [Suspect]
     Indication: ARTHRITIS
     Route: 065
  18. CELEBREX [Suspect]
     Indication: OEDEMA PERIPHERAL
     Route: 065
     Dates: start: 20120201, end: 20120101
  19. PLAQUENIL [Suspect]
     Indication: JOINT SWELLING
     Route: 065
  20. PLAQUENIL [Suspect]
     Indication: OEDEMA PERIPHERAL
     Route: 065
  21. MOBIC [Suspect]
     Indication: OEDEMA PERIPHERAL
     Route: 065
  22. ASPIRIN [Concomitant]
     Route: 065
     Dates: start: 20110101
  23. CELEBREX [Suspect]
     Indication: ARTHRITIS
     Route: 065
     Dates: start: 20120703
  24. CELEBREX [Suspect]
     Indication: JOINT SWELLING
     Route: 065
     Dates: start: 20120703
  25. MEPREDNISONE [Concomitant]
     Indication: ARTHRITIS
     Route: 065
  26. MEPREDNISONE [Concomitant]
     Indication: OEDEMA PERIPHERAL
     Route: 065
  27. CELEBREX [Suspect]
     Route: 065
     Dates: start: 20120703
  28. PREDNISONE [Suspect]
     Indication: JOINT SWELLING
     Route: 065
  29. ALEVE [Suspect]
     Indication: JOINT SWELLING
     Route: 065

REACTIONS (5)
  - DRUG INTOLERANCE [None]
  - ANAPHYLACTIC REACTION [None]
  - LIP BLISTER [None]
  - DRUG INEFFECTIVE [None]
  - HYPERSENSITIVITY [None]
